FAERS Safety Report 5080740-4 (Version None)
Quarter: 2006Q3

REPORT INFORMATION
  Report Type: 
  Country: None (occurrence: None)
  Receive Date: 20060809
  Receipt Date: 20060727
  Transmission Date: 20061208
  Serious: Yes (Other)
  Sender: FDA-Public Use
  Company Number: 2006093418

PATIENT
  Age: 32 Year
  Sex: Female

DRUGS (1)
  1. FLUCONAZOLE [Suspect]
     Indication: CANDIDIASIS
     Dosage: 150 MG (150 MG, SINGLE DOSE), ORAL
     Route: 048
     Dates: start: 20000101, end: 20000101

REACTIONS (2)
  - CANDIDIASIS [None]
  - DIABETES MELLITUS [None]
